FAERS Safety Report 15831475 (Version 2)
Quarter: 2019Q1

REPORT INFORMATION
  Report Type: Spontaneous
  Country: US (occurrence: US)
  Receive Date: 20190116
  Receipt Date: 20190117
  Transmission Date: 20190417
  Serious: Yes (Death)
  Sender: FDA-Public Use
  Company Number: US-INSYS THERAPEUTICS, INC-INS201901-000077

PATIENT
  Age: 24 Year
  Sex: Female

DRUGS (6)
  1. FENTANYL. [Suspect]
     Active Substance: FENTANYL
     Indication: PRODUCT USED FOR UNKNOWN INDICATION
     Route: 048
     Dates: start: 2017
  2. HEROIN [Suspect]
     Active Substance: DIAMORPHINE
     Dates: start: 2017
  3. FENTANYL. [Suspect]
     Active Substance: FENTANYL
     Dates: start: 2017
  4. ALPRAZOLAM. [Suspect]
     Active Substance: ALPRAZOLAM
     Route: 048
     Dates: start: 2017
  5. ALPRAZOLAM. [Suspect]
     Active Substance: ALPRAZOLAM
     Dates: start: 2017
  6. HEROIN [Suspect]
     Active Substance: DIAMORPHINE
     Route: 048
     Dates: start: 2017

REACTIONS (2)
  - Drug abuse [Fatal]
  - Incorrect route of product administration [Unknown]

NARRATIVE: CASE EVENT DATE: 2017
